FAERS Safety Report 4728224-4 (Version None)
Quarter: 2005Q3

REPORT INFORMATION
  Report Type: 
  Country: None (occurrence: None)
  Receive Date: 20050729
  Receipt Date: 20041102
  Transmission Date: 20060218
  Serious: Yes (Other)
  Sender: FDA-Public Use
  Company Number: US-BRISTOL-MYERS SQUIBB COMPANY-12755963

PATIENT
  Age: 34 Year
  Sex: Male

DRUGS (1)
  1. BLENOXANE [Suspect]
     Indication: TESTIS CANCER

REACTIONS (1)
  - MYOCARDIAL INFARCTION [None]
